FAERS Safety Report 5062898-6 (Version None)
Quarter: 2006Q3

REPORT INFORMATION
  Report Type: 
  Country: None (occurrence: None)
  Receive Date: 20060724
  Receipt Date: 20060711
  Transmission Date: 20061208
  Serious: Yes (Other)
  Sender: FDA-Public Use
  Company Number: 2006059337

PATIENT
  Age: 54 Year
  Sex: Female

DRUGS (7)
  1. ATORVASTATIN CALCIUM [Suspect]
     Indication: TYPE IIA HYPERLIPIDAEMIA
     Dosage: 10 MG, ORAL
     Route: 048
     Dates: start: 20010101, end: 20060701
  2. METOPROLOL SUCCINATE [Concomitant]
  3. POTASSIUM (POTASSIUM) [Concomitant]
  4. MAGNESIUM (MAGNESIUM) [Concomitant]
  5. BETA BLOCKING AGENTS (BETA BLOCKING AGENTS) [Concomitant]
  6. ALL OTHER THERAPEUTIC PRODUCTS (ALL OTHER THERAPEUTIC PRODUCTS) [Concomitant]
  7. TROMCARDIN (ASPARTATE POTASSIUM, MAGNESIUM ASPARTATE) [Concomitant]

REACTIONS (3)
  - BLOOD CREATINE PHOSPHOKINASE INCREASED [None]
  - MUSCLE FATIGUE [None]
  - MYALGIA [None]
